FAERS Safety Report 14434686 (Version 2)
Quarter: 2018Q1

REPORT INFORMATION
  Report Type: Spontaneous
  Country: US (occurrence: US)
  Receive Date: 20180124
  Receipt Date: 20180309
  Transmission Date: 20180509
  Serious: Yes (Hospitalization)
  Sender: FDA-Public Use
  Company Number: US-ASTRAZENECA-2018SE08518

PATIENT
  Age: 26030 Day
  Sex: Female
  Weight: 78 kg

DRUGS (8)
  1. SYMBICORT [Suspect]
     Active Substance: BUDESONIDE\FORMOTEROL FUMARATE DIHYDRATE
     Indication: CHRONIC OBSTRUCTIVE PULMONARY DISEASE
     Dosage: 160/4.5 MCG, TWO PUFFS TWO TIMES A DAY AS REQUIRED
     Route: 055
  2. SYMBICORT [Suspect]
     Active Substance: BUDESONIDE\FORMOTEROL FUMARATE DIHYDRATE
     Indication: EMPHYSEMA
     Dosage: 160/4.5 MCG, TWO PUFFS TWO TIMES A DAY AS REQUIRED
     Route: 055
  3. OMEPRAZOLE. [Suspect]
     Active Substance: OMEPRAZOLE
     Route: 048
  4. SYMBICORT [Suspect]
     Active Substance: BUDESONIDE\FORMOTEROL FUMARATE DIHYDRATE
     Indication: CHRONIC OBSTRUCTIVE PULMONARY DISEASE
     Dosage: SPORADICALLY, AS NEEDED AS REQUIRED
     Route: 055
     Dates: end: 20180115
  5. LOVASTATIN. [Concomitant]
     Active Substance: LOVASTATIN
     Route: 048
  6. SYMBICORT [Suspect]
     Active Substance: BUDESONIDE\FORMOTEROL FUMARATE DIHYDRATE
     Indication: EMPHYSEMA
     Dosage: SPORADICALLY, AS NEEDED AS REQUIRED
     Route: 055
     Dates: end: 20180115
  7. PROAIR INHALER [Concomitant]
     Active Substance: ALBUTEROL SULFATE
     Indication: COUGH
     Route: 048
     Dates: start: 20171207
  8. ESTRADIOL. [Concomitant]
     Active Substance: ESTRADIOL
     Route: 048

REACTIONS (13)
  - Vomiting [Unknown]
  - Malaise [Unknown]
  - Intentional product misuse [Unknown]
  - Anxiety [Unknown]
  - Mass [Unknown]
  - Blood pressure increased [Unknown]
  - Device malfunction [Unknown]
  - Dyspnoea [Unknown]
  - Cough [Unknown]
  - Drug administration error [Unknown]
  - Lung disorder [Unknown]
  - Product taste abnormal [Unknown]
  - Diarrhoea [Unknown]

NARRATIVE: CASE EVENT DATE: 20171206
